FAERS Safety Report 13872512 (Version 1)
Quarter: 2017Q3

REPORT INFORMATION
  Report Type: Report from Study
  Country: DE (occurrence: DE)
  Receive Date: 20170816
  Receipt Date: 20170816
  Transmission Date: 20171127
  Serious: Yes (Congenital Anomaly, Other)
  Sender: FDA-Public Use
  Company Number: DE-MYLANLABS-2017M1050230

PATIENT

DRUGS (7)
  1. METOPROLOL. [Concomitant]
     Active Substance: METOPROLOL
     Indication: HYPERTENSION
     Dosage: RECEIVED FROM 0-38+3 WEEK OF GESTATION
     Route: 064
  2. METHYLDOPA. [Suspect]
     Active Substance: METHYLDOPA
     Indication: HYPERTENSION
     Dosage: 750MG/DAY
     Route: 064
  3. CEFUROXIME. [Concomitant]
     Active Substance: CEFUROXIME
     Indication: PNEUMONIA
     Dosage: RECEIVED FROM 5-6 WEEK OF GESTATION
     Route: 064
  4. PREDNISOLONE. [Concomitant]
     Active Substance: PREDNISOLONE
     Indication: INFERTILITY
     Dosage: RECEIVED FROM 0-13 WEEK OF GESTATION
     Route: 064
  5. SALBUTAMOL [Concomitant]
     Active Substance: ALBUTEROL
     Indication: HYPERSENSITIVITY
     Dosage: RECEIVED FROM 5-15 WEEK OF GESTATION
     Route: 064
  6. ASPIRIN                            /00002701/ [Concomitant]
     Active Substance: ASPIRIN
     Indication: INFERTILITY
     Dosage: RECEIVED FROM 0-8 WEEK OF GESTATION
     Route: 064
  7. DIHYDRALAZINE [Concomitant]
     Indication: HYPERTENSION
     Dosage: RECEIVED FROM 0-4 WEEK OF GESTATION
     Route: 064

REACTIONS (2)
  - Talipes [Unknown]
  - Foetal exposure during pregnancy [Unknown]
